FAERS Safety Report 14191091 (Version 5)
Quarter: 2019Q1

REPORT INFORMATION
  Report Type: Report from Study
  Country: US (occurrence: US)
  Receive Date: 20171115
  Receipt Date: 20190114
  Transmission Date: 20190417
  Serious: Yes (Other)
  Sender: FDA-Public Use
  Company Number: US-SA-2017SA223077

PATIENT
  Sex: Female

DRUGS (2)
  1. TERIFLUNOMIDE. [Suspect]
     Active Substance: TERIFLUNOMIDE
     Indication: MULTIPLE SCLEROSIS
     Dosage: 7 MG, QD
     Route: 048
     Dates: start: 20170321, end: 20170406
  2. TERIFLUNOMIDE. [Suspect]
     Active Substance: TERIFLUNOMIDE
     Dosage: 14 MG, QD
     Route: 048
     Dates: start: 20170407

REACTIONS (19)
  - Neck pain [Unknown]
  - Poor quality sleep [Unknown]
  - Multiple sclerosis relapse [Unknown]
  - Visual impairment [Unknown]
  - Headache [Recovered/Resolved]
  - Speech disorder [Not Recovered/Not Resolved]
  - Heart rate increased [Unknown]
  - Abdominal discomfort [Recovered/Resolved]
  - Alopecia [Unknown]
  - Depression [Unknown]
  - Balance disorder [Not Recovered/Not Resolved]
  - JC virus infection [Recovering/Resolving]
  - Dizziness [Unknown]
  - Neuropathy peripheral [Not Recovered/Not Resolved]
  - Alopecia [Recovered/Resolved]
  - Stress [Recovering/Resolving]
  - Multiple sclerosis [Not Recovered/Not Resolved]
  - Unevaluable event [Unknown]
  - Blood pressure increased [Unknown]

NARRATIVE: CASE EVENT DATE: 2017
